FAERS Safety Report 11061406 (Version 1)
Quarter: 2015Q2

REPORT INFORMATION
  Report Type: Spontaneous
  Country: US (occurrence: US)
  Receive Date: 20150424
  Receipt Date: 20150424
  Transmission Date: 20150821
  Serious: No
  Sender: FDA-Public Use
  Company Number: US-PFIZER INC-2015134069

PATIENT
  Age: 60 Year
  Sex: Female
  Weight: 112 kg

DRUGS (2)
  1. GABAPENTIN. [Suspect]
     Active Substance: GABAPENTIN
     Indication: FIBROMYALGIA
     Dosage: 300MG IN MORNING AND 100MG IN EVENING, 2X/DAY
     Route: 048
     Dates: start: 201502
  2. GABAPENTIN. [Suspect]
     Active Substance: GABAPENTIN
     Dosage: 200 MG IN MORNING AND 100 MG IN EVENING, 2X/DAY
     Route: 048

REACTIONS (4)
  - Back pain [Unknown]
  - Product use issue [Unknown]
  - Somnolence [Unknown]
  - Confusional state [Unknown]
